FAERS Safety Report 5858444-7 (Version None)
Quarter: 2008Q3

REPORT INFORMATION
  Report Type: 
  Country: None (occurrence: None)
  Receive Date: 20080822
  Receipt Date: 20080818
  Transmission Date: 20090109
  Serious: Yes (Death)
  Sender: FDA-Public Use
  Company Number: 2008SP016701

PATIENT
  Age: 71 Year
  Sex: Male

DRUGS (1)
  1. TEMODAL [Suspect]
     Indication: GLIOBLASTOMA
     Dosage: 150 MG QD PO
     Route: 048
     Dates: start: 20080609, end: 20080704

REACTIONS (2)
  - BONE MARROW FAILURE [None]
  - PLATELET COUNT DECREASED [None]
